FAERS Safety Report 10220970 (Version 3)
Quarter: 2014Q3

REPORT INFORMATION
  Report Type: Spontaneous
  Country: US (occurrence: None)
  Receive Date: 20140604
  Receipt Date: 20140707
  Transmission Date: 20150326
  Serious: Yes (Hospitalization)
  Sender: FDA-Public Use
  Company Number: UTC-048486

PATIENT
  Age: 70 Year
  Sex: Female
  Weight: 84.4 kg

DRUGS (2)
  1. ADCIRCA (TADALAFIL) UNKNOWN [Concomitant]
  2. REMODULIN [Suspect]
     Active Substance: TREPROSTINIL
     Indication: COR PULMONALE CHRONIC
     Dosage: 0.091UG/KG, CONTINUING, IV DRIP
     Route: 041
     Dates: start: 20091209

REACTIONS (3)
  - Sepsis [None]
  - Staphylococcal infection [None]
  - Infection [None]

NARRATIVE: CASE EVENT DATE: 20140516
